FAERS Safety Report 9537986 (Version 2)
Quarter: 2013Q4

REPORT INFORMATION
  Report Type: Spontaneous
  Country: GB (occurrence: GB)
  Receive Date: 20130919
  Receipt Date: 20131204
  Transmission Date: 20140711
  Serious: Yes (Other)
  Sender: FDA-Public Use
  Company Number: GB-ACTAVIS-2013-16308

PATIENT
  Age: 77 Year
  Sex: Female

DRUGS (6)
  1. CLOPIDOGREL (UNKNOWN) [Suspect]
     Indication: PROPHYLAXIS
     Dosage: 75 MG, UNKNOWN
     Route: 048
     Dates: start: 2012, end: 20130819
  2. FENOFIBRATE [Concomitant]
     Indication: PRODUCT USED FOR UNKNOWN INDICATION
     Dosage: 200 MG, UNKNOWN
     Route: 048
  3. PERINDOPRIL [Concomitant]
     Indication: BLOOD PRESSURE INCREASED
     Dosage: 4 MG, UNKNOWN
     Route: 048
     Dates: end: 20130819
  4. PERINDOPRIL [Concomitant]
     Indication: PROPHYLAXIS
  5. RISPERIDONE [Concomitant]
     Indication: DEMENTIA ALZHEIMER^S TYPE
     Dosage: 500 ?G, UNKNOWN
     Route: 048
     Dates: start: 20130718
  6. SIMVASTATIN [Concomitant]
     Indication: BLOOD CHOLESTEROL INCREASED
     Dosage: 40 MG, UNKNOWN
     Route: 048

REACTIONS (3)
  - Anaemia [Recovering/Resolving]
  - Contusion [Recovered/Resolved]
  - Haemoglobin decreased [Recovering/Resolving]
